FAERS Safety Report 8784328 (Version 2)
Quarter: 2012Q4

REPORT INFORMATION
  Report Type: Report from Study
  Country: JP (occurrence: JP)
  Receive Date: 20120913
  Receipt Date: 20121204
  Transmission Date: 20130627
  Serious: Yes (Hospitalization)
  Sender: FDA-Public Use
  Company Number: JP-VERTEX PHARMACEUTICAL INC.-AE-2012-010797

PATIENT
  Age: 57 Year
  Sex: Female

DRUGS (16)
  1. VX-950 (TELAPREVIR) [Suspect]
     Indication: CHRONIC HEPATITIS C
     Dosage: 2250 mg, qd
     Route: 048
     Dates: start: 20120522, end: 20120531
  2. VX-950 (TELAPREVIR) [Suspect]
     Dosage: 1500 mg, qd
     Route: 048
     Dates: start: 20120605
  3. PEGINTERFERON ALFA-2B [Concomitant]
     Dosage: 1.5 UNK, qw
     Route: 058
     Dates: start: 20120522, end: 20120529
  4. PEGINTERFERON ALFA-2B [Concomitant]
     Dosage: 1 UNK, qw
     Route: 058
     Dates: start: 20120605, end: 20121030
  5. REBETOL [Concomitant]
     Dosage: 600 mg, qd
     Route: 048
     Dates: start: 20120522, end: 20120531
  6. REBETOL [Concomitant]
     Dosage: 600 mg, qd
     Route: 048
     Dates: start: 20120605, end: 20120709
  7. REBETOL [Concomitant]
     Dosage: 400 mg, qd
     Route: 048
     Dates: start: 20120710, end: 20121105
  8. THYRADIN [Concomitant]
     Dosage: 50 UNK, qd
     Route: 048
  9. THYRADIN [Concomitant]
     Dosage: 62.5 UNK, qd
     Route: 048
     Dates: start: 20120821
  10. ERISPAN                            /00565701/ [Concomitant]
     Route: 048
  11. AMAZOLON [Concomitant]
     Route: 048
  12. DOPACOL [Concomitant]
     Route: 048
  13. BISIFROL [Concomitant]
     Route: 048
  14. EXCEGRAN [Concomitant]
     Route: 048
  15. MAGLAX [Concomitant]
     Route: 048
  16. URSO                               /00465701/ [Concomitant]
     Dosage: 600 mg, qd
     Route: 048

REACTIONS (2)
  - Neutrophil count decreased [Recovered/Resolved]
  - Nausea [Recovered/Resolved]
